FAERS Safety Report 6415277-0 (Version None)
Quarter: 2009Q4

REPORT INFORMATION
  Report Type: 
  Country: None (occurrence: None)
  Receive Date: 20091026
  Receipt Date: 20091026
  Transmission Date: 20100525
  Serious: No
  Sender: FDA-Public Use
  Company Number: None

PATIENT

DRUGS (1)
  1. CREST PRO HEALTH CLEAN CINNAMON FLAVOR TOOTHPASTE [Suspect]
     Dates: end: 20091005

REACTIONS (4)
  - GLOSSODYNIA [None]
  - HYPOAESTHESIA ORAL [None]
  - SWELLING [None]
  - TONGUE DRY [None]
